FAERS Safety Report 8490373-5 (Version None)
Quarter: 2012Q3

REPORT INFORMATION
  Report Type: 
  Country: None (occurrence: None)
  Receive Date: 20120705
  Receipt Date: 20120703
  Transmission Date: 20120928
  Serious: Yes (Hospitalization, Other)
  Sender: FDA-Public Use
  Company Number: US-PFIZER INC-2012101253

PATIENT
  Sex: Female

DRUGS (11)
  1. TERIPARATIDE [Suspect]
     Indication: OSTEOPOROSIS
     Dosage: 20 UG, 1X/DAY
  2. TERIPARATIDE [Suspect]
     Dosage: 20 UG, 1X/DAY
  3. TERIPARATIDE [Suspect]
     Dosage: 20 UG, 1X/DAY
  4. TERIPARATIDE [Suspect]
     Dosage: 20 UG, 1X/DAY
  5. CORTISONE [Concomitant]
     Dosage: UNK
  6. HYDROCHLOROTHIAZIDE [Concomitant]
     Dosage: UNK
  7. MIRAPEX [Concomitant]
     Indication: RESTLESS LEGS SYNDROME
     Dosage: UNK
  8. CELEBREX [Concomitant]
     Dosage: UNK
  9. NEXIUM [Concomitant]
     Dosage: UNK
  10. GABAPENTIN [Suspect]
     Indication: RESTLESS LEGS SYNDROME
     Dosage: UNK
     Route: 048
  11. FOSAMAX [Concomitant]
     Dosage: UNK

REACTIONS (12)
  - CHEST PAIN [None]
  - ABDOMINAL DISCOMFORT [None]
  - NAUSEA [None]
  - FALL [None]
  - CONVULSION [None]
  - DIZZINESS [None]
  - VOMITING [None]
  - PAIN IN JAW [None]
  - MYOCARDIAL INFARCTION [None]
  - MUSCLE STRAIN [None]
  - LOSS OF CONSCIOUSNESS [None]
  - PAIN IN EXTREMITY [None]
